FAERS Safety Report 7531375-2 (Version None)
Quarter: 2011Q2

REPORT INFORMATION
  Report Type: 
  Country: None (occurrence: None)
  Receive Date: 20110608
  Receipt Date: 20110525
  Transmission Date: 20111010
  Serious: Yes (Other)
  Sender: FDA-Public Use
  Company Number: PHHY2011JP47297

PATIENT
  Age: 69 Year
  Sex: Male

DRUGS (3)
  1. AFINITOR [Suspect]
     Indication: RENAL CELL CARCINOMA
     Dosage: 10 MG, DAILY
     Route: 048
     Dates: start: 20110215, end: 20110228
  2. ANPEC [Concomitant]
     Indication: METASTASES TO LIVER
     Dosage: 10 MG, UNK
     Route: 065
     Dates: start: 20110215
  3. FENTANYL [Concomitant]
     Indication: METASTASES TO LIVER
     Dosage: 4.2 MG, UNK
     Route: 065
     Dates: start: 20110215

REACTIONS (3)
  - ASPARTATE AMINOTRANSFERASE INCREASED [None]
  - BLOOD LACTATE DEHYDROGENASE INCREASED [None]
  - HAEMOGLOBIN DECREASED [None]
